FAERS Safety Report 9947917 (Version 1)
Quarter: 2014Q1

REPORT INFORMATION
  Report Type: Report from Study
  Country: US (occurrence: US)
  Receive Date: 20140303
  Receipt Date: 20140303
  Transmission Date: 20141002
  Serious: No
  Sender: FDA-Public Use
  Company Number: US-ABBVIE-13P-163-1065033-00

PATIENT
  Age: 24 Year
  Sex: Female

DRUGS (8)
  1. HUMIRA [Suspect]
     Indication: PSORIATIC ARTHROPATHY
     Dates: start: 201112
  2. ETODOLAC [Concomitant]
     Indication: PAIN
     Route: 048
  3. METHOTREXATE [Concomitant]
     Indication: PSORIATIC ARTHROPATHY
     Dosage: 2.5 MG X 6 TABLETS ONCE WEEKLY
  4. RANITADINE [Concomitant]
     Indication: DYSPEPSIA
     Dosage: 150 MG DAILY
     Route: 048
  5. TRAZODONE [Concomitant]
     Indication: NERVOUSNESS
     Dosage: 50 MG DAILY
     Route: 048
  6. ALPRAZOLAM [Concomitant]
     Indication: ANXIETY
     Route: 048
  7. BUPROPION [Concomitant]
     Indication: VITAMIN SUPPLEMENTATION
     Dosage: 300 MG DAILY
     Route: 048
  8. VICODIN [Concomitant]
     Indication: ARTHRALGIA
     Dosage: 5/500 MG DAILY; AS NEEDED
     Route: 048

REACTIONS (5)
  - Device malfunction [Unknown]
  - Pain [Unknown]
  - Incorrect dose administered [Unknown]
  - Injection site haemorrhage [Unknown]
  - Injection site pruritus [Unknown]
